FAERS Safety Report 8015434-6 (Version None)
Quarter: 2011Q4

REPORT INFORMATION
  Report Type: 
  Country: None (occurrence: None)
  Receive Date: 20111230
  Receipt Date: 20111216
  Transmission Date: 20120403
  Serious: Yes (Hospitalization)
  Sender: FDA-Public Use
  Company Number: FR-MYLANLABS-2011S1026098

PATIENT
  Age: 65 Year
  Sex: Female

DRUGS (2)
  1. FLUOROURACIL [Suspect]
     Indication: COLON CANCER
     Dosage: TOTAL DOSE 6400MG
     Route: 065
  2. LEUCOVORIN CALCIUM [Concomitant]
     Indication: COLON CANCER
     Route: 065

REACTIONS (7)
  - SOMNOLENCE [None]
  - DYSARTHRIA [None]
  - THROMBOCYTOPENIA [None]
  - NEUTROPENIA [None]
  - SKIN TOXICITY [None]
  - MUCOSAL INFLAMMATION [None]
  - CONFUSIONAL STATE [None]
